FAERS Safety Report 8167230-7 (Version None)
Quarter: 2012Q1

REPORT INFORMATION
  Report Type: 
  Country: None (occurrence: None)
  Receive Date: 20120227
  Receipt Date: 20120213
  Transmission Date: 20120608
  Serious: Yes (Hospitalization, Other)
  Sender: FDA-Public Use
  Company Number: BR-SANOFI-AVENTIS-2012SA009602

PATIENT
  Age: 49 Year
  Sex: Female
  Weight: 66 kg

DRUGS (3)
  1. APIDRA [Suspect]
     Route: 065
     Dates: start: 20070101
  2. ALL OTHER THERAPEUTIC PRODUCTS [Concomitant]
  3. LANTUS [Suspect]
     Route: 065
     Dates: start: 20070101

REACTIONS (12)
  - DYSURIA [None]
  - RENAL DISORDER [None]
  - BLINDNESS UNILATERAL [None]
  - HYPERGLYCAEMIA [None]
  - CARDIO-RESPIRATORY ARREST [None]
  - DYSPNOEA [None]
  - PAIN [None]
  - OEDEMA PERIPHERAL [None]
  - CARDIAC DISORDER [None]
  - LUNG DISORDER [None]
  - HEADACHE [None]
  - DIZZINESS [None]
